FAERS Safety Report 4338680-1 (Version None)
Quarter: 2004Q2

REPORT INFORMATION
  Report Type: 
  Country: None (occurrence: None)
  Receive Date: 20040409
  Receipt Date: 20040324
  Transmission Date: 20050107
  Serious: Yes (Death, Hospitalization)
  Sender: FDA-Public Use
  Company Number: 2004IM000485

PATIENT
  Age: 68 Year

DRUGS (1)
  1. INTERFERON GAMMA-1B (INTERFERON GAMMA-1B ) [Suspect]
     Indication: INTERSTITIAL LUNG DISEASE
     Dosage: 200 UG; TIW, SUBCUTANEOUS
     Route: 058
     Dates: start: 20020101, end: 20020101

REACTIONS (6)
  - ABDOMINAL SEPSIS [None]
  - DRUG TOXICITY [None]
  - INTESTINAL PERFORATION [None]
  - MALAISE [None]
  - PYREXIA [None]
  - RESPIRATORY FAILURE [None]
